FAERS Safety Report 9189414 (Version 1)
Quarter: 2013Q1

REPORT INFORMATION
  Report Type: Spontaneous
  Country: AR (occurrence: AR)
  Receive Date: 20130326
  Receipt Date: 20130326
  Transmission Date: 20140127
  Serious: Yes (Hospitalization, Other)
  Sender: FDA-Public Use
  Company Number: PHHY2013AR028490

PATIENT
  Sex: Male

DRUGS (2)
  1. DIOVAN [Suspect]
     Indication: HYPERTENSION
     Dosage: 80 MG, DAILY
     Route: 048
  2. DIOVAN [Suspect]
     Dosage: 80 MG, DAILY
     Route: 048

REACTIONS (2)
  - Blood pressure decreased [Recovered/Resolved]
  - Calculus bladder [Recovered/Resolved]
